FAERS Safety Report 8531567-X (Version None)
Quarter: 2012Q3

REPORT INFORMATION
  Report Type: 
  Country: None (occurrence: None)
  Receive Date: 20120723
  Receipt Date: 20120716
  Transmission Date: 20120928
  Serious: Yes (Other)
  Sender: FDA-Public Use
  Company Number: US-JNJFOC-20120708715

PATIENT
  Sex: Female
  Weight: 52.62 kg

DRUGS (6)
  1. STELARA [Suspect]
     Indication: PSORIASIS
     Route: 058
     Dates: start: 20120611
  2. VALIUM [Concomitant]
     Indication: PANIC ATTACK
     Route: 048
  3. VALIUM [Concomitant]
     Indication: ANXIETY
     Route: 048
  4. AMBIEN [Concomitant]
     Indication: SLEEP DISORDER
     Route: 048
  5. PAXIL [Concomitant]
     Indication: ANXIETY
     Route: 048
  6. PAXIL [Concomitant]
     Indication: PANIC ATTACK
     Route: 048

REACTIONS (4)
  - DECREASED APPETITE [None]
  - ABNORMAL LOSS OF WEIGHT [None]
  - NAUSEA [None]
  - HEADACHE [None]
